FAERS Safety Report 9455597 (Version 3)
Quarter: 2013Q3

REPORT INFORMATION
  Report Type: Report from Study
  Country: FR (occurrence: FR)
  Receive Date: 20130813
  Receipt Date: 20130828
  Transmission Date: 20140515
  Serious: Yes (Other)
  Sender: FDA-Public Use
  Company Number: FR-ASTELLAS-2013EU006914

PATIENT
  Age: 58 Year
  Sex: Male

DRUGS (17)
  1. TACROLIMUS MR4 CAPSULES [Suspect]
     Indication: RENAL TRANSPLANT
     Dosage: 8 MG, UID/QD
     Route: 048
     Dates: start: 20111204, end: 20111210
  2. MYCOPHENOLATE MOFETIL [Suspect]
     Indication: RENAL TRANSPLANT
     Dosage: 1 G, BID
     Route: 048
     Dates: start: 20111204, end: 20111210
  3. CALCIDIA [Concomitant]
     Indication: PROPHYLAXIS
     Dosage: UNK
     Route: 048
     Dates: end: 20111203
  4. MIMPARA [Concomitant]
     Indication: HYPERPARATHYROIDISM
     Dosage: UNK
     Route: 048
     Dates: end: 20111203
  5. TAHOR [Concomitant]
     Indication: DYSLIPIDAEMIA
     Dosage: UNK
     Route: 048
     Dates: end: 20111203
  6. OMIX L.P. [Concomitant]
     Indication: PROSTATIC ADENOMA
     Dosage: UNK
     Route: 048
     Dates: end: 20111203
  7. ATARAX                             /00058401/ [Concomitant]
     Indication: PROPHYLAXIS
     Dosage: UNK
     Route: 048
     Dates: start: 20111204, end: 20111204
  8. KEFANDOL                           /00483101/ [Concomitant]
     Indication: PROPHYLAXIS
     Dosage: UNK
     Route: 042
     Dates: start: 20111204, end: 20111204
  9. INEXIUM                            /01479302/ [Concomitant]
     Indication: PROPHYLAXIS
     Dosage: UNK
     Route: 048
     Dates: start: 20111206
  10. LASILIX                            /00032601/ [Concomitant]
     Indication: COMPLICATIONS OF TRANSPLANTED KIDNEY
     Dosage: UNK
     Route: 048
     Dates: start: 20111206, end: 20111209
  11. BACTRIM [Concomitant]
     Indication: PROPHYLAXIS
     Dosage: UNK
     Route: 048
     Dates: start: 20111207
  12. BRISTOPEN [Concomitant]
     Indication: PROPHYLAXIS
     Dosage: UNK
     Route: 048
     Dates: start: 20111207
  13. TRANSIPEG                          /00754501/ [Concomitant]
     Indication: GASTROINTESTINAL DISORDER
     Dosage: UNK
     Route: 048
     Dates: start: 20111208
  14. DEBRIDAT                           /00465201/ [Concomitant]
     Indication: GASTROINTESTINAL DISORDER
     Dosage: UNK
     Route: 048
     Dates: start: 20111208
  15. DIFFU K [Concomitant]
     Indication: HYPOKALAEMIA
     Dosage: UNK
     Route: 048
     Dates: start: 20111208, end: 20111209
  16. ARANESP [Concomitant]
     Indication: ANAEMIA
     Dosage: UNK
     Route: 058
     Dates: start: 20111210
  17. HEPARIN [Concomitant]
     Indication: RENAL VEIN THROMBOSIS
     Dosage: UNK
     Route: 042
     Dates: start: 20111210, end: 20111210

REACTIONS (1)
  - Shock haemorrhagic [Recovered/Resolved]
